FAERS Safety Report 21636024 (Version 1)
Quarter: 2022Q4

REPORT INFORMATION
  Report Type: Other
  Country: CA (occurrence: CA)
  Receive Date: 20221123
  Receipt Date: 20221123
  Transmission Date: 20230113
  Serious: Yes (Other)
  Sender: FDA-Public Use
  Company Number: CA-CELLTRION INC.-2022CA019555

PATIENT

DRUGS (5)
  1. RITUXIMAB [Suspect]
     Active Substance: RITUXIMAB
     Indication: Thrombotic thrombocytopenic purpura
     Dosage: 375 MG
     Route: 065
  2. COVID-19 VACCINE [Concomitant]
  3. METHYLPREDNISOLONE ACETATE [Concomitant]
     Active Substance: METHYLPREDNISOLONE ACETATE
     Dosage: 1000 MG
     Route: 042
  4. HUMAN PLASMA [Concomitant]
     Active Substance: HUMAN PLASMA
     Dosage: UNK, 2 EVERY 1 DAY
  5. PREDNISONE [Concomitant]
     Active Substance: PREDNISONE

REACTIONS (3)
  - Thrombotic thrombocytopenic purpura [Unknown]
  - Off label use [Unknown]
  - Off label use [Unknown]
